FAERS Safety Report 23402953 (Version 7)
Quarter: 2024Q3

REPORT INFORMATION
  Report Type: Spontaneous
  Country: CA (occurrence: CA)
  Receive Date: 20240115
  Receipt Date: 20240823
  Transmission Date: 20241016
  Serious: Yes (Life-Threatening, Other)
  Sender: CELLTRION
  Company Number: CA-CELLTRION INC.-2023CA018055

PATIENT

DRUGS (6)
  1. INFLECTRA [Suspect]
     Active Substance: INFLIXIMAB-DYYB
     Indication: Sarcoidosis
     Dosage: 435 MG, W0, 2, 6 AND EVERY 8 WEEKS FOR 12MONTH
     Route: 042
     Dates: start: 20231020, end: 20231130
  2. INFLECTRA [Suspect]
     Active Substance: INFLIXIMAB-DYYB
     Dosage: 435 MG, W0, 2, 6 AND EVERY 8 WEEKS FOR 12MONTH
     Route: 042
     Dates: start: 20231130
  3. INFLECTRA [Suspect]
     Active Substance: INFLIXIMAB-DYYB
     Dosage: 435 MG, EVERY 6 WEEKS (435 MG, AFTER 8 WEEKS AND 5 DAYS)
     Route: 042
     Dates: start: 20240130
  4. INFLECTRA [Suspect]
     Active Substance: INFLIXIMAB-DYYB
     Dosage: 435 MG, EVERY 6 WEEKS
     Route: 042
     Dates: start: 20240418
  5. INFLECTRA [Suspect]
     Active Substance: INFLIXIMAB-DYYB
     Dosage: 435 MG, EVERY 6 WEEKS (7 WEEKS AND 6 DAYS)
     Route: 042
     Dates: start: 20240612
  6. PREDNISONE [Concomitant]
     Active Substance: PREDNISONE
     Dosage: 5 MG, DAILY (STABLE AT A LOW DOSE)
     Route: 048

REACTIONS (9)
  - Inflammatory pain [Recovering/Resolving]
  - Muscular weakness [Unknown]
  - Condition aggravated [Recovering/Resolving]
  - Urinary tract infection bacterial [Unknown]
  - Bone disorder [Unknown]
  - Muscle atrophy [Not Recovered/Not Resolved]
  - Fibrosis [Unknown]
  - Off label use [Unknown]
  - Inappropriate schedule of product administration [Unknown]

NARRATIVE: CASE EVENT DATE: 20231020
